FAERS Safety Report 8869766 (Version 1)
Quarter: 2012Q4

REPORT INFORMATION
  Report Type: 
  Country: BR (occurrence: BR)
  Receive Date: 20121028
  Receipt Date: 20121028
  Transmission Date: 20130627
  Serious: Yes (Hospitalization, Other)
  Sender: FDA-Public Use
  Company Number: BR-JNJFOC-20120910129

PATIENT
  Age: 37 Year
  Sex: Female

DRUGS (4)
  1. XARELTO [Suspect]
     Indication: THROMBOSIS PROPHYLAXIS
     Route: 048
     Dates: start: 201207, end: 201209
  2. ALDACTONE A [Concomitant]
     Route: 065
  3. SILDENAFIL [Concomitant]
     Route: 065
  4. FUROSEMIDE [Concomitant]
     Route: 065

REACTIONS (2)
  - Haematuria [Recovered/Resolved]
  - Pulmonary arterial hypertension [Unknown]
